FAERS Safety Report 8122378-8 (Version None)
Quarter: 2012Q1

REPORT INFORMATION
  Report Type: 
  Country: None (occurrence: None)
  Receive Date: 20120208
  Receipt Date: 20120206
  Transmission Date: 20120608
  Serious: Yes (Death)
  Sender: FDA-Public Use
  Company Number: US-GLAXOSMITHKLINE-A0955279A

PATIENT
  Age: 69 Year
  Sex: Female

DRUGS (17)
  1. FLEXERIL [Concomitant]
  2. ATIVAN [Concomitant]
  3. AMBIEN [Concomitant]
  4. PRILOSEC [Concomitant]
  5. LEVAQUIN [Concomitant]
  6. CYTOMEL [Concomitant]
  7. FLONASE [Concomitant]
  8. TOPROL-XL [Concomitant]
  9. AUGMENTIN '125' [Concomitant]
  10. SYNTHROID [Concomitant]
  11. RECLAST [Concomitant]
  12. PREMARIN [Concomitant]
  13. ADVAIR DISKUS 100/50 [Suspect]
     Indication: CHRONIC OBSTRUCTIVE PULMONARY DISEASE
     Dosage: 1PUFF TWICE PER DAY
     Route: 055
  14. BUMEX [Concomitant]
  15. HYDROCODONE [Concomitant]
  16. PREDNISONE [Concomitant]
  17. ALBUTEROL [Concomitant]

REACTIONS (1)
  - DYSPNOEA [None]
